FAERS Safety Report 8084293-8 (Version None)
Quarter: 2012Q1

REPORT INFORMATION
  Report Type: 
  Country: None (occurrence: None)
  Receive Date: 20120128
  Receipt Date: 20110311
  Transmission Date: 20120608
  Serious: No
  Sender: FDA-Public Use
  Company Number: US-ABBOTT-11P-163-0709790-00

PATIENT
  Sex: Male

DRUGS (4)
  1. MINERAL CORTICOIDS [Concomitant]
     Indication: SYNCOPE
  2. HUMIRA [Suspect]
     Dates: start: 20110304
  3. HUMIRA [Suspect]
     Indication: JUVENILE ARTHRITIS
     Dates: start: 20100601
  4. THERMOTABS [Concomitant]
     Indication: SYNCOPE

REACTIONS (5)
  - PAIN [None]
  - INJECTION SITE HAEMORRHAGE [None]
  - SYNCOPE [None]
  - INJECTION SITE PAIN [None]
  - INJECTION SITE HAEMATOMA [None]
